FAERS Safety Report 6416568-X (Version None)
Quarter: 2009Q4

REPORT INFORMATION
  Report Type: 
  Country: None (occurrence: None)
  Receive Date: 20091023
  Receipt Date: 20091009
  Transmission Date: 20100525
  Serious: Yes (Hospitalization)
  Sender: FDA-Public Use
  Company Number: 20090460

PATIENT
  Age: 45 Year
  Sex: Female

DRUGS (1)
  1. VENOFER [Suspect]
     Indication: ANAEMIA
     Dosage: 100 MG IN 100 ML NORMAL SALINE INTRAVENOUS DRIP
     Route: 041
     Dates: start: 20090929, end: 20090929

REACTIONS (4)
  - INFUSION SITE DISCOLOURATION [None]
  - INFUSION SITE EXTRAVASATION [None]
  - INFUSION SITE SWELLING [None]
  - OFF LABEL USE [None]
